FAERS Safety Report 8962472 (Version 2)
Quarter: 2012Q4

REPORT INFORMATION
  Report Type: 
  Country: IL (occurrence: IL)
  Receive Date: 20121213
  Receipt Date: 20121227
  Transmission Date: 20130627
  Serious: Yes (Other)
  Sender: FDA-Public Use
  Company Number: IL-BRISTOL-MYERS SQUIBB COMPANY-17201799

PATIENT
  Age: 40 Year
  Sex: Male

DRUGS (1)
  1. ONGLYZA TABS 5 MG [Suspect]

REACTIONS (1)
  - Hepatic enzyme increased [Unknown]
